FAERS Safety Report 7722568-X (Version None)
Quarter: 2011Q3

REPORT INFORMATION
  Report Type: 
  Country: None (occurrence: None)
  Receive Date: 20110831
  Receipt Date: 20110829
  Transmission Date: 20111222
  Serious: Yes (Life-Threatening, Other)
  Sender: FDA-Public Use
  Company Number: IR-GENZYME-FLUD-1000913

PATIENT
  Sex: Female
  Weight: 9 kg

DRUGS (14)
  1. ACYCLOVIR [Concomitant]
  2. ANTI-THYMOCYTE GLOBULIN NOS [Suspect]
     Indication: BONE MARROW CONDITIONING REGIMEN
     Dosage: 10 MG/KG, QD ON DAYS -4 AND -1
     Route: 065
     Dates: start: 20070224, end: 20070227
  3. ANTI-THYMOCYTE GLOBULIN NOS [Suspect]
     Indication: WHITE BLOOD CELL DISORDER
  4. TRIMETHOPRIM + SULFAMETHOXAZOLE [Concomitant]
     Indication: ANTIFUNGAL PROPHYLAXIS
     Dosage: UNK
     Route: 065
  5. FLUDARA [Suspect]
     Indication: BONE MARROW CONDITIONING REGIMEN
     Dosage: 30 MG/M2, QD ON DAYS -8 TO -4
     Route: 042
     Dates: start: 20070220, end: 20070224
  6. FLUDARA [Suspect]
     Indication: WHITE BLOOD CELL DISORDER
  7. METHYLPREDNISOLONE [Concomitant]
     Indication: PROPHYLAXIS AGAINST GRAFT VERSUS HOST DISEASE
     Route: 065
  8. IMMUNE GLOBULIN NOS [Concomitant]
     Indication: PRODUCT USED FOR UNKNOWN INDICATION
     Dosage: .5 G/KG, 1X/W
     Route: 042
  9. MELPHALAN [Suspect]
     Indication: BONE MARROW CONDITIONING REGIMEN
     Dosage: 70 MG/M2, QD ON DAYS -3 AND -2
     Route: 042
     Dates: start: 20070225, end: 20070226
  10. MELPHALAN [Suspect]
     Indication: WHITE BLOOD CELL DISORDER
  11. CYCLOSPORINE [Concomitant]
     Indication: PROPHYLAXIS AGAINST GRAFT VERSUS HOST DISEASE
     Route: 065
  12. NEUPOGEN [Concomitant]
     Indication: PROPHYLAXIS
     Dosage: FROM DAY +8
     Route: 065
  13. ACYCLOVIR [Concomitant]
     Indication: ANTIVIRAL PROPHYLAXIS
     Route: 065
  14. ITRACONAZOLE [Concomitant]
     Indication: ANTIFUNGAL PROPHYLAXIS
     Route: 067

REACTIONS (2)
  - PSEUDOMONAL SEPSIS [None]
  - ACUTE GRAFT VERSUS HOST DISEASE IN SKIN [None]
